FAERS Safety Report 7248342-9 (Version None)
Quarter: 2011Q1

REPORT INFORMATION
  Report Type: 
  Country: None (occurrence: None)
  Receive Date: 20110127
  Receipt Date: 20110119
  Transmission Date: 20110831
  Serious: Yes (Hospitalization)
  Sender: FDA-Public Use
  Company Number: PHHY2011JP04519

PATIENT
  Age: 4 Year
  Sex: Male

DRUGS (1)
  1. VOLTAREN [Suspect]
     Indication: PYREXIA
     Dosage: UNK
     Route: 054

REACTIONS (3)
  - ENCEPHALITIS [None]
  - CONVULSION [None]
  - DYSPNOEA [None]
